FAERS Safety Report 16742000 (Version 1)
Quarter: 2019Q3

REPORT INFORMATION
  Report Type: Spontaneous
  Country: GB (occurrence: GB)
  Receive Date: 20190826
  Receipt Date: 20190826
  Transmission Date: 20191005
  Serious: Yes (Other)
  Sender: FDA-Public Use
  Company Number: GB-TEVA-2019-GB-1096439

PATIENT
  Age: 57 Year
  Sex: Female
  Weight: 73 kg

DRUGS (10)
  1. FLUOXETINE [Concomitant]
     Active Substance: FLUOXETINE HYDROCHLORIDE
     Dates: start: 20190128
  2. LOSARTAN. [Concomitant]
     Active Substance: LOSARTAN
     Dates: start: 20190128
  3. FENBID [Concomitant]
     Active Substance: IBUPROFEN
     Dosage: APPLY 3 TIMES PER DAY AS REQUIRED.
     Dates: start: 20190128
  4. CLARITHROMYCIN. [Suspect]
     Active Substance: CLARITHROMYCIN
     Dates: start: 20190722
  5. FEXOFENADINE [Concomitant]
     Active Substance: FEXOFENADINE HYDROCHLORIDE
     Dates: start: 20190724
  6. FLUCLOXACILLIN [Concomitant]
     Active Substance: FLUCLOXACILLIN
     Dates: start: 20190724
  7. LUPRON DEPOT [Concomitant]
     Active Substance: LEUPROLIDE ACETATE
     Dosage: USE AS DIRECTED.
     Dates: start: 20190709, end: 20190710
  8. ATENOLOL. [Concomitant]
     Active Substance: ATENOLOL
     Dates: start: 20190128
  9. ATORVASTATIN [Concomitant]
     Active Substance: ATORVASTATIN
     Dates: start: 20180810
  10. TIBOLONE [Concomitant]
     Active Substance: TIBOLONE
     Dates: start: 20190605, end: 20190619

REACTIONS (1)
  - Urticaria [Recovering/Resolving]

NARRATIVE: CASE EVENT DATE: 20190724
